FAERS Safety Report 7236321-7 (Version None)
Quarter: 2011Q1

REPORT INFORMATION
  Report Type: 
  Country: None (occurrence: None)
  Receive Date: 20110103
  Receipt Date: 20101217
  Transmission Date: 20110831
  Serious: Yes (Hospitalization)
  Sender: FDA-Public Use
  Company Number: 20101101CINRY1674

PATIENT
  Age: 10 Year
  Sex: Female
  Weight: 39.8 kg

DRUGS (3)
  1. CONCERTA CR (METHYLPHENIDATE HYDROCHLORIDE) [Concomitant]
  2. CINRYZE [Suspect]
     Indication: HEREDITARY ANGIOEDEMA
     Dosage: (1000 UNIT, 2 IN 1 WK), INTRAVENOUS; (500 UNIT, 2 IN 1 WK), INTRAVENOUS
     Route: 042
     Dates: start: 20100621, end: 20101101
  3. CINRYZE [Suspect]
     Indication: HEREDITARY ANGIOEDEMA
     Dosage: (1000 UNIT, 2 IN 1 WK), INTRAVENOUS; (500 UNIT, 2 IN 1 WK), INTRAVENOUS
     Route: 042
     Dates: start: 20101102

REACTIONS (4)
  - TRANSIENT ISCHAEMIC ATTACK [None]
  - NECK PAIN [None]
  - OPIATES POSITIVE [None]
  - IRRITABILITY [None]
